FAERS Safety Report 9578303 (Version 1)
Quarter: 2013Q4

REPORT INFORMATION
  Report Type: Spontaneous
  Country: US (occurrence: US)
  Receive Date: 20131001
  Receipt Date: 20131001
  Transmission Date: 20140711
  Serious: No
  Sender: FDA-Public Use
  Company Number: US-AMGEN-USASP2013012166

PATIENT
  Age: 61 Year
  Sex: Female
  Weight: 108.84 kg

DRUGS (16)
  1. ENBREL [Suspect]
     Indication: PRODUCT USED FOR UNKNOWN INDICATION
     Dosage: 50 MG, QWK
     Route: 058
  2. FLUNISOLIDE [Concomitant]
     Dosage: 0.025 %, SPR
  3. DIOVAN HCT [Concomitant]
     Dosage: 320-12.5
  4. DEXILANT [Concomitant]
     Dosage: 30 MG, DR
  5. YEAST [Concomitant]
     Dosage: 600 MG, UNK
  6. FISH OIL [Concomitant]
     Dosage: UNK
  7. ASPIRIN LOW [Concomitant]
     Dosage: 81 MG, EC
  8. DIGOXIN [Concomitant]
     Dosage: 0.25 MG, UNK
  9. CALCIUM [Concomitant]
     Dosage: 500 UNK, UNK
  10. WELLBUTRIN [Concomitant]
     Dosage: 75 MG, UNK
  11. LODINE [Concomitant]
     Dosage: 200 MG, UNK
  12. VITAMIN D                          /00107901/ [Concomitant]
     Dosage: 1000 UNIT, UNK
  13. MELATONIN [Concomitant]
     Dosage: 3 MG, UNK
  14. VIVELLE DOT [Concomitant]
     Dosage: 0.025 MG, UNK
  15. ADVAIR [Concomitant]
     Dosage: 100/50, DISKU AER
  16. ASTELIN                            /00884002/ [Concomitant]
     Dosage: 137 MUG, UNK

REACTIONS (1)
  - Mycobacterium tuberculosis complex test positive [Unknown]
